FAERS Safety Report 23567049 (Version 1)
Quarter: 2024Q1

REPORT INFORMATION
  Report Type: Spontaneous
  Country: US (occurrence: US)
  Receive Date: 20240226
  Receipt Date: 20240226
  Transmission Date: 20240410
  Serious: No
  Sender: FDA-Public Use
  Company Number: US-AMNEAL PHARMACEUTICALS-2023-AMRX-04103

PATIENT
  Age: 75 Year
  Sex: Male

DRUGS (3)
  1. RYTARY [Suspect]
     Active Substance: CARBIDOPA\LEVODOPA
     Indication: Product used for unknown indication
     Dosage: TAKE 4 CAPSULES EVERY DAY AS DIRECTED. 3 CAPSULES FOR FIRST 2 DOSES, THEN 2 CAPSULES FOR LAST 2 DOSE
     Route: 048
  2. RYTARY [Suspect]
     Active Substance: CARBIDOPA\LEVODOPA
     Dosage: TAKE 2-3 CAPSULES, 4 TIMES DAILY. MAX 10 CAPSULES DAILY
     Route: 048
     Dates: start: 20231226
  3. AMANTADINE [Suspect]
     Active Substance: AMANTADINE
     Indication: Product used for unknown indication
     Dosage: UNK
     Route: 065

REACTIONS (4)
  - Tremor [Unknown]
  - Ill-defined disorder [Unknown]
  - Hallucination [Unknown]
  - Abnormal dreams [Unknown]

NARRATIVE: CASE EVENT DATE: 20231114
